FAERS Safety Report 17641637 (Version 1)
Quarter: 2020Q2

REPORT INFORMATION
  Report Type: Other
  Country: FR (occurrence: FR)
  Receive Date: 20200408
  Receipt Date: 20200408
  Transmission Date: 20200713
  Serious: Yes (Other)
  Sender: FDA-Public Use
  Company Number: FR-ASTELLAS-2020US012627

PATIENT
  Age: 62 Year
  Sex: Female

DRUGS (3)
  1. ADVAGRAF [Suspect]
     Active Substance: TACROLIMUS
     Indication: PROPHYLAXIS AGAINST TRANSPLANT REJECTION
     Dosage: UNK UNK, UNKNOWN FREQ.
     Route: 048
     Dates: start: 2005
  2. ADVAGRAF [Interacting]
     Active Substance: TACROLIMUS
     Dosage: UNK UNK, UNKNOWN FREQ.
     Route: 048
  3. HARVONI [Interacting]
     Active Substance: LEDIPASVIR\SOFOSBUVIR
     Indication: HEPATITIS C
     Dosage: 1 DF, ONCE DAILY (90 MG/400 MG)
     Route: 048
     Dates: start: 20150923

REACTIONS (1)
  - Immunosuppressant drug level decreased [Recovered/Resolved]

NARRATIVE: CASE EVENT DATE: 20151002
